FAERS Safety Report 21333078 (Version 10)
Quarter: 2023Q1

REPORT INFORMATION
  Report Type: Spontaneous
  Country: US (occurrence: US)
  Receive Date: 20220914
  Receipt Date: 20230131
  Transmission Date: 20230418
  Serious: Yes (Hospitalization, Other)
  Sender: FDA-Public Use
  Company Number: US-PFIZER INC-PV202200062372

PATIENT
  Age: 66 Year
  Sex: Female

DRUGS (2)
  1. IBRANCE [Suspect]
     Active Substance: PALBOCICLIB
     Dosage: UNK
     Dates: start: 202208, end: 2022
  2. IBRANCE [Suspect]
     Active Substance: PALBOCICLIB
     Dosage: 125 MG
     Dates: start: 20220908, end: 202210

REACTIONS (25)
  - Pneumonia [Unknown]
  - COVID-19 [Recovered/Resolved]
  - Hip fracture [Unknown]
  - Fatigue [Recovering/Resolving]
  - Frequent bowel movements [Unknown]
  - Faeces soft [Unknown]
  - Middle insomnia [Unknown]
  - Feeling abnormal [Unknown]
  - Nausea [Unknown]
  - White blood cell count decreased [Not Recovered/Not Resolved]
  - Productive cough [Not Recovered/Not Resolved]
  - Hair disorder [Not Recovered/Not Resolved]
  - Diarrhoea [Recovering/Resolving]
  - Fungal skin infection [Unknown]
  - Vaginal infection [Recovered/Resolved]
  - Muscle spasms [Recovering/Resolving]
  - Cough [Unknown]
  - Hyperhidrosis [Unknown]
  - Coronavirus infection [Recovering/Resolving]
  - Dyspnoea [Recovering/Resolving]
  - Therapeutic response unexpected [Unknown]
  - Constipation [Unknown]
  - Gastrointestinal motility disorder [Recovering/Resolving]
  - Alopecia [Recovering/Resolving]
  - Asthma [Recovering/Resolving]

NARRATIVE: CASE EVENT DATE: 20220101
